FAERS Safety Report 9063415 (Version 1)
Quarter: 2013Q1

REPORT INFORMATION
  Report Type: Report from Study
  Country: US (occurrence: US)
  Receive Date: 20130129
  Receipt Date: 20130129
  Transmission Date: 20140127
  Serious: No
  Sender: FDA-Public Use
  Company Number: US-ABBOTT-12P-163-0948497-00

PATIENT
  Age: 49 None
  Sex: Female
  Weight: 63.56 kg

DRUGS (7)
  1. HUMIRA 40 MG/ 0.8 ML PRE-FILLED SYRINGE [Suspect]
     Indication: RHEUMATOID ARTHRITIS
     Route: 058
     Dates: start: 201203, end: 201204
  2. HUMIRA 40 MG/ 0.8 ML PRE-FILLED SYRINGE [Suspect]
     Route: 058
     Dates: start: 20120606
  3. OXYCODONE [Concomitant]
     Indication: NECK PAIN
  4. FENTANYL [Concomitant]
     Indication: NECK PAIN
     Dosage: PATCH
  5. SOMA [Concomitant]
     Indication: MUSCLE RELAXANT THERAPY
  6. XANAX [Concomitant]
     Indication: ANXIETY
  7. DOXEPIN [Concomitant]
     Indication: SLEEP DISORDER
     Dosage: AT BEDTIME

REACTIONS (4)
  - Injection site bruising [Recovering/Resolving]
  - Hordeolum [Recovered/Resolved]
  - Gastroenteritis viral [Recovered/Resolved]
  - Gastric infection [Recovered/Resolved]
